FAERS Safety Report 5662350-0 (Version None)
Quarter: 2008Q1

REPORT INFORMATION
  Report Type: 
  Country: None (occurrence: None)
  Receive Date: 20080312
  Receipt Date: 20080304
  Transmission Date: 20080703
  Serious: Yes (Congenital Anomaly)
  Sender: FDA-Public Use
  Company Number: BR-PFIZER INC-2008020933

PATIENT

DRUGS (4)
  1. PROVERA [Suspect]
     Indication: MENSTRUATION DELAYED
     Route: 064
     Dates: start: 20070101, end: 20070101
  2. DIGOXIN [Concomitant]
     Dates: end: 20080228
  3. FUROSEMIDE [Concomitant]
     Dates: end: 20080228
  4. FLUOXETINE [Concomitant]

REACTIONS (2)
  - DRUG EXPOSURE DURING PREGNANCY [None]
  - FOETAL MALFORMATION [None]
